FAERS Safety Report 13975155 (Version 2)
Quarter: 2017Q4

REPORT INFORMATION
  Report Type: Report from Study
  Country: AU (occurrence: AU)
  Receive Date: 20170914
  Receipt Date: 20171215
  Transmission Date: 20180321
  Serious: Yes (Hospitalization, Other)
  Sender: FDA-Public Use
  Company Number: AU-REGENERON PHARMACEUTICALS, INC.-2017-22088

PATIENT

DRUGS (3)
  1. EYLEA [Suspect]
     Active Substance: AFLIBERCEPT
     Indication: NEOVASCULAR AGE-RELATED MACULAR DEGENERATION
     Dosage: UNK
     Route: 031
     Dates: start: 20121201
  2. BETADINE [Concomitant]
     Active Substance: POVIDONE-IODINE
     Indication: INFECTION PROPHYLAXIS
  3. EYLEA [Suspect]
     Active Substance: AFLIBERCEPT
     Dosage: BOTH EYE EVERY 8 WEEKS
     Route: 031

REACTIONS (10)
  - Pneumonia [Recovered/Resolved]
  - Drug dose omission [Unknown]
  - Visual impairment [Not Recovered/Not Resolved]
  - General physical health deterioration [Unknown]
  - Charles Bonnet syndrome [Not Recovered/Not Resolved]
  - Injection site discomfort [Recovered/Resolved]
  - Eye disorder [Not Recovered/Not Resolved]
  - Injection site pain [Recovered/Resolved]
  - Pleurisy [Recovered/Resolved]
  - Flushing [Recovered/Resolved]

NARRATIVE: CASE EVENT DATE: 201708
